FAERS Safety Report 17015116 (Version 2)
Quarter: 2020Q3

REPORT INFORMATION
  Report Type: Spontaneous
  Country: SK (occurrence: SK)
  Receive Date: 20191111
  Receipt Date: 20200730
  Transmission Date: 20201102
  Serious: Yes (Other)
  Sender: FDA-Public Use
  Company Number: SK-SA-2019SA288994

PATIENT

DRUGS (6)
  1. STILNOX [Concomitant]
     Active Substance: ZOLPIDEM TARTRATE
     Indication: INSOMNIA
     Dosage: 10 MG, QD
     Route: 048
     Dates: start: 20170720
  2. VIDONORM [Concomitant]
     Indication: HYPERTENSION
     Dosage: 0.8 MG, QD
     Route: 048
     Dates: start: 20181214
  3. LEMTRADA [Suspect]
     Active Substance: ALEMTUZUMAB
     Indication: MULTIPLE SCLEROSIS
     Dosage: 12 MG, QD
     Route: 041
     Dates: start: 20180702, end: 20180706
  4. BETAHISTINE [Concomitant]
     Active Substance: BETAHISTINE
     Indication: VERTIGO
     Dosage: 24 MG, BID
     Route: 048
     Dates: start: 20130429
  5. KETONAL [KETOPROFEN] [Concomitant]
     Active Substance: KETOPROFEN
     Dosage: UNK UNK, UNK
     Route: 065
  6. XANAX [Concomitant]
     Active Substance: ALPRAZOLAM
     Indication: MUSCLE SPASMS
     Dosage: 0.25 MG, BID
     Route: 048
     Dates: start: 20150703

REACTIONS (9)
  - Dysuria [Unknown]
  - White blood cells urine positive [Not Recovered/Not Resolved]
  - Thrombocytopenia [Unknown]
  - Haematuria [Recovering/Resolving]
  - Blood immunoglobulin G decreased [Unknown]
  - Antinuclear antibody positive [Unknown]
  - Proteinuria [Recovering/Resolving]
  - Complement factor C3 decreased [Unknown]
  - Abdominal pain lower [Unknown]

NARRATIVE: CASE EVENT DATE: 201812
